FAERS Safety Report 6589216-6 (Version None)
Quarter: 2010Q1

REPORT INFORMATION
  Report Type: 
  Country: None (occurrence: None)
  Receive Date: 20100218
  Receipt Date: 20100211
  Transmission Date: 20100710
  Serious: Yes (Hospitalization)
  Sender: FDA-Public Use
  Company Number: US-PURDUE-USA-2009-0041006

PATIENT
  Sex: Male
  Weight: 93.6 kg

DRUGS (13)
  1. DILAUDID-HP [Suspect]
     Indication: PAIN
     Dosage: 0.2 MG, DAILY
     Route: 042
     Dates: start: 20090921
  2. CARBIDOPA AND LEVODOPA [Suspect]
     Dosage: UNK
     Dates: start: 20090914
  3. CARBIDOPA AND LEVODOPA [Suspect]
     Indication: ON AND OFF PHENOMENON
  4. PERCOCET [Suspect]
     Indication: PAIN
     Dosage: UNK
     Dates: start: 20090902, end: 20091002
  5. CLONAZEPAM [Concomitant]
  6. HALDOL [Concomitant]
  7. HEPARIN [Concomitant]
  8. SIMVASTATIN [Concomitant]
  9. LORAZEPAM [Concomitant]
  10. SERTRALINE HYDROCHLORIDE [Concomitant]
  11. MS CONTIN [Concomitant]
  12. DIPHENHYDRAMINE [Concomitant]
  13. METHYLNALTREXONE [Concomitant]

REACTIONS (4)
  - DEHYDRATION [None]
  - ILEUS PARALYTIC [None]
  - INCONTINENCE [None]
  - PNEUMONIA [None]
